FAERS Safety Report 10356879 (Version 2)
Quarter: 2014Q3

REPORT INFORMATION
  Report Type: Report from Study
  Country: ZA (occurrence: ZA)
  Receive Date: 20140801
  Receipt Date: 20140801
  Transmission Date: 20150326
  Serious: Yes (Death, Hospitalization, Other)
  Sender: FDA-Public Use
  Company Number: PHHY2014ZA092237

PATIENT
  Sex: Male

DRUGS (1)
  1. GLIVEC [Suspect]
     Active Substance: IMATINIB MESYLATE
     Indication: CHRONIC MYELOID LEUKAEMIA
     Dosage: 600 MG

REACTIONS (11)
  - Septic shock [Fatal]
  - Loss of consciousness [Unknown]
  - Circulatory collapse [Unknown]
  - Pneumonia [Fatal]
  - Chronic myeloid leukaemia [Fatal]
  - Malignant neoplasm progression [Fatal]
  - Pyrexia [Fatal]
  - Tachycardia [Fatal]
  - Hypotension [Fatal]
  - Pancytopenia [Unknown]
  - Blast crisis in myelogenous leukaemia [Fatal]
